FAERS Safety Report 9252877 (Version 1)
Quarter: 2013Q2

REPORT INFORMATION
  Report Type: Spontaneous
  Country: US (occurrence: US)
  Receive Date: 20130424
  Receipt Date: 20130424
  Transmission Date: 20140414
  Serious: No
  Sender: FDA-Public Use
  Company Number: US-ASTRAZENECA-2013SE23679

PATIENT
  Age: 75 Year
  Sex: Female
  Weight: 59 kg

DRUGS (6)
  1. SYMBICORT [Suspect]
     Indication: CHRONIC OBSTRUCTIVE PULMONARY DISEASE
     Dosage: 320 MCG, BID
     Route: 055
     Dates: start: 201210
  2. SYMBICORT [Suspect]
     Indication: CHRONIC OBSTRUCTIVE PULMONARY DISEASE
     Dosage: 320 MCG, DAILY
     Route: 055
  3. LISINOPRIL [Suspect]
     Indication: HYPERTENSION
     Route: 048
  4. SPIRIVA [Suspect]
     Route: 065
     Dates: start: 201210
  5. GENERIC FOSAMAX [Concomitant]
     Indication: OSTEOPOROSIS
     Dates: start: 201210
  6. HCTZ [Concomitant]
     Indication: HYPERTENSION

REACTIONS (3)
  - Dysphonia [Not Recovered/Not Resolved]
  - Constipation [Not Recovered/Not Resolved]
  - Intentional drug misuse [Unknown]
